FAERS Safety Report 8506249-0 (Version None)
Quarter: 2012Q3

REPORT INFORMATION
  Report Type: 
  Country: None (occurrence: None)
  Receive Date: 20120712
  Receipt Date: 20120703
  Transmission Date: 20120928
  Serious: No
  Sender: FDA-Public Use
  Company Number: US-ASTRAZENECA-2012SE45290

PATIENT
  Age: 72 Year
  Sex: Male

DRUGS (5)
  1. COUMADIN [Suspect]
     Route: 048
  2. TOPROL-XL [Concomitant]
  3. PANCREAZE [Concomitant]
  4. IMODIUM A-D [Concomitant]
  5. CAPRELSA [Suspect]
     Indication: THYROID CANCER
     Route: 048

REACTIONS (4)
  - FEELING ABNORMAL [None]
  - BLOOD URINE PRESENT [None]
  - DRUG LEVEL INCREASED [None]
  - MUSCLE SPASMS [None]
